FAERS Safety Report 9496188 (Version 1)
Quarter: 2013Q3

REPORT INFORMATION
  Report Type: Spontaneous
  Country: GB (occurrence: GB)
  Receive Date: 20130904
  Receipt Date: 20130904
  Transmission Date: 20140515
  Serious: Yes (Other)
  Sender: FDA-Public Use
  Company Number: GB-BRISTOL-MYERS SQUIBB COMPANY-19238781

PATIENT
  Sex: 0

DRUGS (1)
  1. BYETTA [Suspect]

REACTIONS (3)
  - Abdominal mass [Unknown]
  - Blood glucose increased [Unknown]
  - Jaundice [Unknown]
